FAERS Safety Report 7502660-5 (Version None)
Quarter: 2011Q2

REPORT INFORMATION
  Report Type: 
  Country: None (occurrence: None)
  Receive Date: 20110525
  Receipt Date: 20110516
  Transmission Date: 20111010
  Serious: Yes (Hospitalization)
  Sender: FDA-Public Use
  Company Number: PHHY2011CN43166

PATIENT
  Age: 56 Year
  Sex: Female

DRUGS (1)
  1. CARBAMAZEPINE [Suspect]
     Indication: EPILEPSY

REACTIONS (26)
  - DRUG HYPERSENSITIVITY [None]
  - ULCER [None]
  - GENITAL EROSION [None]
  - PAIN [None]
  - EYE DISCHARGE [None]
  - DISCOMFORT [None]
  - CONVULSION [None]
  - SECRETION DISCHARGE [None]
  - CUTIS LAXA [None]
  - PHARYNGEAL EROSION [None]
  - ERYTHEMA [None]
  - BLISTER [None]
  - PYREXIA [None]
  - TRENDELENBURG'S SYMPTOM [None]
  - DEHYDRATION [None]
  - FLUSHING [None]
  - DELIRIUM [None]
  - INFLAMMATION [None]
  - HEPATIC FUNCTION ABNORMAL [None]
  - MALAISE [None]
  - HYPOPHAGIA [None]
  - HYPOPROTEINAEMIA [None]
  - WOUND [None]
  - LIP EROSION [None]
  - ORAL MUCOSA EROSION [None]
  - NECROSIS [None]
